FAERS Safety Report 8276471-X (Version None)
Quarter: 2012Q2

REPORT INFORMATION
  Report Type: 
  Country: None (occurrence: None)
  Receive Date: 20120412
  Receipt Date: 20120403
  Transmission Date: 20120825
  Serious: Yes (Other)
  Sender: FDA-Public Use
  Company Number: CA-JNJFOC-20120401744

PATIENT
  Sex: Male
  Weight: 85.4 kg

DRUGS (5)
  1. METHOTREXATE [Concomitant]
     Route: 065
  2. SEROQUEL [Concomitant]
     Route: 065
  3. REMICADE [Suspect]
     Indication: CROHN'S DISEASE
     Route: 042
  4. FOLIC ACID [Concomitant]
     Route: 065
  5. PREDNISOLONE [Concomitant]
     Dosage: TAPERING DOSE
     Route: 065

REACTIONS (1)
  - NEPHROLITHIASIS [None]
